FAERS Safety Report 13150156 (Version 1)
Quarter: 2017Q1

REPORT INFORMATION
  Report Type: Spontaneous
  Country: JP (occurrence: JP)
  Receive Date: 20170125
  Receipt Date: 20170125
  Transmission Date: 20170428
  Serious: Yes (Hospitalization)
  Sender: FDA-Public Use
  Company Number: JP-PFIZER INC-2016483108

PATIENT

DRUGS (2)
  1. SUTENT [Suspect]
     Active Substance: SUNITINIB MALATE
     Indication: RENAL CELL CARCINOMA
     Dosage: 37.5 MG, DAILY
     Route: 048
     Dates: start: 20161012, end: 20161026
  2. SUTENT [Suspect]
     Active Substance: SUNITINIB MALATE
     Dosage: 37.5 MG, CYCLIC (2 WEEKS ON AND 2 WEEKS OFF)
     Route: 048
     Dates: start: 201611, end: 201701

REACTIONS (3)
  - Pyrexia [Recovering/Resolving]
  - Platelet count decreased [Not Recovered/Not Resolved]
  - Bacterial infection [Recovering/Resolving]

NARRATIVE: CASE EVENT DATE: 20161026
